FAERS Safety Report 4983145-7 (Version None)
Quarter: 2006Q2

REPORT INFORMATION
  Report Type: 
  Country: None (occurrence: None)
  Receive Date: 20060419
  Receipt Date: 20060406
  Transmission Date: 20061013
  Serious: Yes (Hospitalization)
  Sender: FDA-Public Use
  Company Number: VNL_0135_2006

PATIENT
  Sex: Male

DRUGS (2)
  1. APO-GO [Suspect]
     Indication: PARKINSON'S DISEASE
     Dosage: DF INFUSION SC
     Route: 058
     Dates: end: 20060401
  2. APO-GO [Suspect]
     Indication: PARKINSON'S DISEASE
     Dosage: DF VARIABLE SC
     Route: 058
     Dates: start: 20060401

REACTIONS (4)
  - ABDOMINAL RIGIDITY [None]
  - DRUG HYPERSENSITIVITY [None]
  - INJECTION SITE ERYTHEMA [None]
  - SKIN NECROSIS [None]
